FAERS Safety Report 12711887 (Version 1)
Quarter: 2016Q3

REPORT INFORMATION
  Report Type: Spontaneous
  Country: CA (occurrence: CA)
  Receive Date: 20160902
  Receipt Date: 20160902
  Transmission Date: 20161109
  Serious: Yes (Other)
  Sender: FDA-Public Use
  Company Number: CA-REGENERON PHARMACEUTICALS, INC.-2016-21137

PATIENT

DRUGS (1)
  1. EYLEA [Suspect]
     Active Substance: AFLIBERCEPT
     Indication: DIABETIC RETINAL OEDEMA
     Dosage: UNK
     Route: 031

REACTIONS (11)
  - Loss of consciousness [Unknown]
  - Disorientation [Unknown]
  - Mobility decreased [Unknown]
  - Vision blurred [Unknown]
  - Feeling cold [Unknown]
  - Eye pain [Unknown]
  - Vision blurred [Unknown]
  - Fall [Unknown]
  - Fall [Unknown]
  - Off label use [Unknown]
  - Drug hypersensitivity [Unknown]

NARRATIVE: CASE EVENT DATE: 20160127
